FAERS Safety Report 4382167-7 (Version None)
Quarter: 2004Q2

REPORT INFORMATION
  Report Type: 
  Country: None (occurrence: None)
  Receive Date: 20040618
  Receipt Date: 20040618
  Transmission Date: 20050107
  Serious: Yes (Other)
  Sender: FDA-Public Use
  Company Number: None

PATIENT
  Age: 62 Year
  Sex: Male
  Weight: 68.5 kg

DRUGS (4)
  1. FLUNISOLIDE [Suspect]
  2. FOLIC ACID [Concomitant]
  3. FEXOFENADINE HCL [Concomitant]
  4. FLUTICAB/SALMETEROL [Concomitant]

REACTIONS (3)
  - NASAL DISCOMFORT [None]
  - SNEEZING [None]
  - THROAT IRRITATION [None]
